FAERS Safety Report 10035313 (Version 2)
Quarter: 2014Q2

REPORT INFORMATION
  Report Type: Spontaneous
  Country: CA (occurrence: CA)
  Receive Date: 20140325
  Receipt Date: 20140409
  Transmission Date: 20141212
  Serious: Yes (Hospitalization, Other)
  Sender: FDA-Public Use
  Company Number: CA-ABBVIE-14K-028-1214304-00

PATIENT
  Age: 50 Year
  Sex: Female
  Weight: 54.48 kg

DRUGS (3)
  1. LUPRON DEPOT [Suspect]
     Indication: UTERINE POLYP
     Route: 030
     Dates: start: 20131109, end: 20131109
  2. LUPRON DEPOT [Suspect]
     Indication: PREOPERATIVE CARE
  3. MULTIVITAMIN [Concomitant]
     Indication: PRODUCT USED FOR UNKNOWN INDICATION

REACTIONS (11)
  - Dizziness [Unknown]
  - Syncope [Unknown]
  - Convulsion [Recovered/Resolved]
  - Lumbar vertebral fracture [Unknown]
  - Leukaemia [Not Recovered/Not Resolved]
  - Procedural haemorrhage [Unknown]
  - Flushing [Not Recovered/Not Resolved]
  - Neck pain [Unknown]
  - Anaemia [Not Recovered/Not Resolved]
  - Insomnia [Not Recovered/Not Resolved]
  - General physical health deterioration [Not Recovered/Not Resolved]
